FAERS Safety Report 4349015-2 (Version None)
Quarter: 2004Q2

REPORT INFORMATION
  Report Type: 
  Country: None (occurrence: None)
  Receive Date: 20040427
  Receipt Date: 20040427
  Transmission Date: 20050107
  Serious: No
  Sender: FDA-Public Use
  Company Number: None

PATIENT
  Sex: Male
  Weight: 79.8 kg

DRUGS (1)
  1. TPN [Suspect]
     Dosage: CONT INFUSION
     Route: 042
     Dates: start: 20040424

REACTIONS (1)
  - CHILLS [None]
